FAERS Safety Report 6018344-9 (Version None)
Quarter: 2008Q4

REPORT INFORMATION
  Report Type: 
  Country: None (occurrence: None)
  Receive Date: 20081217
  Receipt Date: 20081015
  Transmission Date: 20090506
  Serious: No
  Sender: FDA-Public Use
  Company Number: US-WYE-H06427708

PATIENT

DRUGS (1)
  1. TORISEL [Suspect]

REACTIONS (2)
  - NASAL CONGESTION [None]
  - SALIVARY HYPERSECRETION [None]
